FAERS Safety Report 17554802 (Version 1)
Quarter: 2020Q1

REPORT INFORMATION
  Report Type: Spontaneous
  Country: US (occurrence: US)
  Receive Date: 20200310
  Receipt Date: 20200310
  Transmission Date: 20200409
  Serious: Yes (Other)
  Sender: FDA-Public Use
  Company Number: None

PATIENT
  Sex: Female

DRUGS (7)
  1. METAXALONE. [Concomitant]
     Active Substance: METAXALONE
  2. ENBREL [Suspect]
     Active Substance: ETANERCEPT
     Indication: RHEUMATOID ARTHRITIS
     Route: 058
     Dates: start: 20180130
  3. METHOTREXATE. [Concomitant]
     Active Substance: METHOTREXATE
  4. DIAZEPAM. [Concomitant]
     Active Substance: DIAZEPAM
  5. LIDOCAINE. [Concomitant]
     Active Substance: LIDOCAINE
  6. FOLIC ACID. [Concomitant]
     Active Substance: FOLIC ACID
  7. IBUPROFEN. [Concomitant]
     Active Substance: IBUPROFEN

REACTIONS (1)
  - Lung neoplasm malignant [None]
